FAERS Safety Report 19175944 (Version 1)
Quarter: 2021Q2

REPORT INFORMATION
  Report Type: Spontaneous
  Country: US (occurrence: US)
  Receive Date: 20210424
  Receipt Date: 20210424
  Transmission Date: 20210717
  Serious: No
  Sender: FDA-Public Use
  Company Number: US-ORGANON-O2104USA001194

PATIENT
  Sex: Female

DRUGS (1)
  1. NEXPLANON [Suspect]
     Active Substance: ETONOGESTREL
     Indication: CONTRACEPTION
     Dosage: 1 IMPLANT, ROUTE REPORTED AS SUBDURAL

REACTIONS (4)
  - Vaginal haemorrhage [Unknown]
  - Alopecia [Unknown]
  - Incorrect route of product administration [Unknown]
  - Headache [Unknown]
